FAERS Safety Report 11330249 (Version 4)
Quarter: 2016Q4

REPORT INFORMATION
  Report Type: Spontaneous
  Country: US (occurrence: US)
  Receive Date: 20150803
  Receipt Date: 20161205
  Transmission Date: 20170206
  Serious: Yes (Hospitalization)
  Sender: FDA-Public Use
  Company Number: US-BAYER-2015-391830

PATIENT
  Age: 28 Year
  Sex: Female
  Weight: 82 kg

DRUGS (3)
  1. TYLENOL [Concomitant]
     Active Substance: ACETAMINOPHEN
  2. MIRENA [Suspect]
     Active Substance: LEVONORGESTREL
     Indication: CONTRACEPTION
     Dosage: 20 MCG/24HR, CONT
     Route: 015
     Dates: start: 20091229, end: 20140305
  3. MIRENA [Suspect]
     Active Substance: LEVONORGESTREL

REACTIONS (7)
  - Pain [Recovered/Resolved]
  - Ectopic pregnancy with contraceptive device [None]
  - Device issue [Recovered/Resolved]
  - Injury [Recovered/Resolved]
  - Embedded device [Recovered/Resolved]
  - Drug ineffective [None]
  - Infection [None]

NARRATIVE: CASE EVENT DATE: 2014
